FAERS Safety Report 23153240 (Version 1)
Quarter: 2023Q4

REPORT INFORMATION
  Report Type: Spontaneous
  Country: US (occurrence: None)
  Receive Date: 20231106
  Receipt Date: 20231106
  Transmission Date: 20240110
  Serious: Yes (Hospitalization)
  Sender: FDA-Public Use
  Company Number: None

PATIENT
  Age: 51 Year
  Sex: Female

DRUGS (3)
  1. DURVALUMAB [Suspect]
     Active Substance: DURVALUMAB
     Indication: Breast cancer
     Dates: start: 20231006
  2. TRASTUZUMAB [Concomitant]
     Active Substance: TRASTUZUMAB
     Dates: start: 20231006
  3. PERTUZUMAB [Concomitant]
     Active Substance: PERTUZUMAB
     Dates: start: 20231006

REACTIONS (1)
  - Breast cellulitis [None]

NARRATIVE: CASE EVENT DATE: 20231007
